FAERS Safety Report 7372901-6 (Version None)
Quarter: 2011Q1

REPORT INFORMATION
  Report Type: 
  Country: None (occurrence: None)
  Receive Date: 20110324
  Receipt Date: 20110321
  Transmission Date: 20110831
  Serious: Yes (Other)
  Sender: FDA-Public Use
  Company Number: DK-PFIZER INC-2011062708

PATIENT

DRUGS (1)
  1. ZARATOR [Suspect]

REACTIONS (2)
  - BLOOD CREATINE PHOSPHOKINASE [None]
  - CHEST PAIN [None]
